FAERS Safety Report 5405919-0 (Version None)
Quarter: 2007Q3

REPORT INFORMATION
  Report Type: 
  Country: None (occurrence: None)
  Receive Date: 20070802
  Receipt Date: 20070726
  Transmission Date: 20080115
  Serious: Yes (Other)
  Sender: FDA-Public Use
  Company Number: 2007327536

PATIENT
  Age: 83 Year
  Sex: Female
  Weight: 43.1 kg

DRUGS (2)
  1. ROGAINE [Suspect]
     Indication: ALOPECIA
     Dosage: 2 CAPFULS 2 TIMES A DAY (2 IN 1 D), TOPICAL
     Route: 061
     Dates: start: 20060811
  2. LIPITOR [Concomitant]

REACTIONS (1)
  - AMNESIA [None]
